FAERS Safety Report 14744849 (Version 3)
Quarter: 2018Q2

REPORT INFORMATION
  Report Type: Spontaneous
  Country: BR (occurrence: BR)
  Receive Date: 20180411
  Receipt Date: 20180521
  Transmission Date: 20180711
  Serious: Yes (Other)
  Sender: FDA-Public Use
  Company Number: BR-009507513-1803BRA005050

PATIENT
  Age: 91 Year
  Sex: Female
  Weight: 58 kg

DRUGS (2)
  1. JANUVIA [Suspect]
     Active Substance: SITAGLIPTIN PHOSPHATE
     Dosage: 100 MG, 1 TABLET IN THE MORNING AND 1 TABLET IN THE DINNER
     Route: 048
     Dates: start: 2018
  2. JANUVIA [Suspect]
     Active Substance: SITAGLIPTIN PHOSPHATE
     Indication: TYPE 2 DIABETES MELLITUS
     Dosage: STRENGTH: 100 MG, ONE AND HALF TABLET PER DAY
     Route: 048
     Dates: start: 2017, end: 2018

REACTIONS (3)
  - Diabetes mellitus inadequate control [Recovered/Resolved]
  - Wrong technique in product usage process [Unknown]
  - Inappropriate schedule of drug administration [Unknown]

NARRATIVE: CASE EVENT DATE: 2017
